FAERS Safety Report 6243336 (Version 2)
Quarter: 2019Q1

REPORT INFORMATION
  Report Type: Spontaneous
  Country: FR (occurrence: FR)
  Receive Date: 20070222
  Receipt Date: 20190206
  Transmission Date: 20190418
  Serious: Yes (Hospitalization, Other)
  Sender: FDA-Public Use
  Company Number: FR-GILEAD-2007-0011292

PATIENT
  Age: 47 Year
  Sex: Male

DRUGS (20)
  1. RIMIFON [Suspect]
     Active Substance: ISONIAZID
     Indication: PRODUCT USED FOR UNKNOWN INDICATION
     Route: 048
     Dates: start: 20061129
  2. TRUVADA [Suspect]
     Active Substance: EMTRICITABINE\TENOFOVIR DISOPROXIL FUMARATE
     Indication: PRODUCT USED FOR UNKNOWN INDICATION
     Route: 048
     Dates: start: 20070103, end: 20070108
  3. PIRILENE [Suspect]
     Active Substance: PYRAZINAMIDE
     Indication: PRODUCT USED FOR UNKNOWN INDICATION
     Route: 048
     Dates: start: 20061129
  4. DUPHALAC [Concomitant]
     Active Substance: LACTULOSE
  5. SUSTIVA [Suspect]
     Active Substance: EFAVIRENZ
     Indication: PRODUCT USED FOR UNKNOWN INDICATION
     Route: 048
     Dates: start: 20070103, end: 20070108
  6. KARDEGIC [Concomitant]
     Active Substance: ASPIRIN DL-LYSINE
  7. REYATAZ [Concomitant]
     Active Substance: ATAZANAVIR SULFATE
  8. MYAMBUTOL [Suspect]
     Active Substance: ETHAMBUTOL HYDROCHLORIDE
     Indication: PRODUCT USED FOR UNKNOWN INDICATION
     Route: 048
     Dates: start: 20061129
  9. COMBIVIR [Concomitant]
     Active Substance: LAMIVUDINE\ZIDOVUDINE
  10. XYZAL [Concomitant]
     Active Substance: LEVOCETIRIZINE DIHYDROCHLORIDE
  11. DEXERYL CREME [Concomitant]
  12. PREVISCAN (FLUINDIONE) [Suspect]
     Active Substance: FLUINDIONE
     Indication: PRODUCT USED FOR UNKNOWN INDICATION
     Route: 048
  13. PRAXINOR [Concomitant]
  14. PARFENAC [Concomitant]
     Active Substance: BUFEXAMAC
  15. LEXOMIL [Concomitant]
     Active Substance: BROMAZEPAM
  16. BACTRIM [Concomitant]
     Active Substance: SULFAMETHOXAZOLE\TRIMETHOPRIM
  17. NORVIR [Concomitant]
     Active Substance: RITONAVIR
  18. THERALENE [Concomitant]
     Active Substance: TRIMEPRAZINE
  19. HEPTAMYL [Concomitant]
     Active Substance: HEPTAMINOL HYDROCHLORIDE
  20. RIFAMPICINE [Concomitant]
     Active Substance: RIFAMPIN
     Dosage: UNK
     Route: 048
     Dates: start: 20061129, end: 20070109

REACTIONS (11)
  - Lip oedema [Not Recovered/Not Resolved]
  - Eosinophilia [Recovering/Resolving]
  - Seborrhoeic dermatitis [None]
  - Parapsoriasis [None]
  - Oral fungal infection [None]
  - Rash papular [Not Recovered/Not Resolved]
  - Eyelid oedema [Not Recovered/Not Resolved]
  - Face oedema [Not Recovered/Not Resolved]
  - Drug reaction with eosinophilia and systemic symptoms [Not Recovered/Not Resolved]
  - Hepatitis [Recovering/Resolving]
  - Oral disorder [Not Recovered/Not Resolved]

NARRATIVE: CASE EVENT DATE: 20070106
